FAERS Safety Report 18479726 (Version 1)
Quarter: 2020Q4

REPORT INFORMATION
  Report Type: Spontaneous
  Country: US (occurrence: US)
  Receive Date: 20201106
  Receipt Date: 20201106
  Transmission Date: 20210114
  Serious: No
  Sender: FDA-Public Use
  Company Number: None

PATIENT
  Age: 27 Year
  Sex: Female

DRUGS (1)
  1. TEMOZOLOMIDE CAP 20 MG [Suspect]
     Active Substance: TEMOZOLOMIDE
     Route: 048
     Dates: start: 202004

REACTIONS (2)
  - Therapy interrupted [None]
  - Blood count abnormal [None]

NARRATIVE: CASE EVENT DATE: 20200701
